FAERS Safety Report 7018690-6 (Version None)
Quarter: 2010Q3

REPORT INFORMATION
  Report Type: 
  Country: None (occurrence: None)
  Receive Date: 20100924
  Receipt Date: 20100913
  Transmission Date: 20110219
  Serious: Yes (Hospitalization)
  Sender: FDA-Public Use
  Company Number: 2010-00944

PATIENT
  Sex: Female

DRUGS (2)
  1. CEFTRIAXONE [Suspect]
     Indication: LYME DISEASE
     Dosage: 2 GM (1 IN 1 D), PARENTERAL
     Route: 051
  2. DOXYCYCLINE [Concomitant]

REACTIONS (4)
  - AGRANULOCYTOSIS [None]
  - OROPHARYNGEAL PAIN [None]
  - PHARYNGEAL ERYTHEMA [None]
  - TACHYCARDIA [None]
